FAERS Safety Report 6531163-X (Version None)
Quarter: 2010Q1

REPORT INFORMATION
  Report Type: 
  Country: None (occurrence: None)
  Receive Date: 20100108
  Receipt Date: 20100105
  Transmission Date: 20100710
  Serious: Yes (Death, Hospitalization)
  Sender: FDA-Public Use
  Company Number: FR-ROCHE-657835

PATIENT
  Sex: Male

DRUGS (8)
  1. CAPECITABINE [Suspect]
     Indication: METASTATIC GASTRIC CANCER
     Dosage: INITIAL DOSE, CYCLE ONE OF THREE COURSES
     Route: 048
     Dates: start: 20070315
  2. CAPECITABINE [Suspect]
     Dosage: REDUCTION OF DOSE TO 75% OF INITIAL DOSE
     Route: 048
  3. CAPECITABINE [Suspect]
     Dosage: REDUCTION OF DOSE TO 50% OF INITIAL DOSE
     Route: 048
  4. CAPECITABINE [Suspect]
     Route: 048
     Dates: start: 20070524
  5. CISPLATIN [Suspect]
     Indication: METASTATIC GASTRIC CANCER
     Dosage: CYCLE 1 OF 3 COURSES
     Route: 065
     Dates: start: 20070315
  6. CISPLATIN [Suspect]
     Dosage: DOSE REDUCTION TO 75% OF INITIAL DOSE, CYCLE 2 OF ONE COURSE
     Route: 065
     Dates: start: 20070524
  7. EPIRUBICIN HYDROCHLORIDE [Suspect]
     Indication: METASTATIC GASTRIC CANCER
     Dosage: CYCLE 1 OF 3 COURSES
     Route: 065
     Dates: start: 20070315
  8. EPIRUBICIN HYDROCHLORIDE [Suspect]
     Dosage: DOSE REDUCTION TO 75% OF INITIAL DOSE
     Route: 065
     Dates: start: 20070524

REACTIONS (5)
  - BALANCE DISORDER [None]
  - DEATH [None]
  - FALL [None]
  - HYPOKALAEMIA [None]
  - METABOLIC ALKALOSIS [None]
